FAERS Safety Report 17436416 (Version 1)
Quarter: 2020Q1

REPORT INFORMATION
  Report Type: Spontaneous
  Country: US (occurrence: US)
  Receive Date: 20200219
  Receipt Date: 20200219
  Transmission Date: 20200409
  Serious: Yes (Death)
  Sender: FDA-Public Use
  Company Number: US-LANTHEUS-LMI-2019-00095

PATIENT
  Age: 69 Year
  Sex: Female
  Weight: 104 kg

DRUGS (3)
  1. DEFINITY [Suspect]
     Active Substance: PERFLUTREN
     Indication: ECHOCARDIOGRAM
     Dosage: 2 ML, (1.5 ML DEFINITY PREPARED IN 8.5 ML PRESERVATIVE-FREE NORMAL SALINE)
     Route: 042
     Dates: start: 20181103, end: 20181103
  2. VANCOMYCIN [Concomitant]
     Active Substance: VANCOMYCIN
     Indication: PRODUCT USED FOR UNKNOWN INDICATION
     Route: 065
  3. DIGOXIN. [Concomitant]
     Active Substance: DIGOXIN
     Indication: PRODUCT USED FOR UNKNOWN INDICATION
     Route: 065

REACTIONS (1)
  - Cardiac arrest [Fatal]

NARRATIVE: CASE EVENT DATE: 20181103
